FAERS Safety Report 20603541 (Version 3)
Quarter: 2022Q2

REPORT INFORMATION
  Report Type: Spontaneous
  Country: US (occurrence: None)
  Receive Date: 20220316
  Receipt Date: 20220411
  Transmission Date: 20220720
  Serious: Yes (Death, Life-Threatening, Hospitalization, Disabling, Other)
  Sender: FDA-Public Use
  Company Number: 2022A110715

PATIENT
  Age: 18240 Day
  Sex: Male
  Weight: 99.8 kg

DRUGS (2)
  1. FARXIGA [Suspect]
     Active Substance: DAPAGLIFLOZIN PROPANEDIOL
     Indication: Cardiac failure
     Route: 048
     Dates: start: 20211026, end: 20211227
  2. ENTRESTO [Suspect]
     Active Substance: SACUBITRIL\VALSARTAN
     Route: 065

REACTIONS (7)
  - COVID-19 [Fatal]
  - Staphylococcal sepsis [Fatal]
  - Multiple organ dysfunction syndrome [Fatal]
  - Drug reaction with eosinophilia and systemic symptoms [Fatal]
  - Renal failure [Fatal]
  - Genital infection male [Fatal]
  - Localised infection [Fatal]

NARRATIVE: CASE EVENT DATE: 20211215
